FAERS Safety Report 8131572-1 (Version None)
Quarter: 2012Q1

REPORT INFORMATION
  Report Type: 
  Country: None (occurrence: None)
  Receive Date: 20120213
  Receipt Date: 20120210
  Transmission Date: 20120608
  Serious: No
  Sender: FDA-Public Use
  Company Number: US-PFIZER INC-2012037318

PATIENT
  Sex: Female
  Weight: 59 kg

DRUGS (5)
  1. CHANTIX [Suspect]
     Indication: SMOKING CESSATION THERAPY
     Dosage: 0.5 MG, DAILY
     Dates: start: 20120101
  2. LOSARTAN [Concomitant]
     Indication: HYPERTENSION
     Dosage: 0.5 MG, UNK
  3. FLUVOXAMINE [Concomitant]
     Indication: ANXIETY
     Dosage: 50 MG, 2X/DAY
  4. NIACIN [Concomitant]
     Indication: BLOOD CHOLESTEROL INCREASED
     Dosage: 1500 MG, UNK
  5. SIMVASTATIN [Concomitant]
     Dosage: 40 MG, UNK

REACTIONS (6)
  - INFLUENZA [None]
  - NAUSEA [None]
  - PAIN [None]
  - FATIGUE [None]
  - WEIGHT INCREASED [None]
  - CONSTIPATION [None]
